FAERS Safety Report 21812169 (Version 1)
Quarter: 2023Q1

REPORT INFORMATION
  Report Type: Spontaneous
  Country: US (occurrence: None)
  Receive Date: 20230103
  Receipt Date: 20230103
  Transmission Date: 20230417
  Serious: Yes (Hospitalization)
  Sender: FDA-Public Use
  Company Number: None

PATIENT
  Age: 40 Year
  Sex: Male
  Weight: 103.01 kg

DRUGS (18)
  1. DEFERASIROX [Suspect]
     Active Substance: DEFERASIROX
     Indication: Sickle cell disease
     Dosage: FREQUENCY : DAILY;?
     Route: 048
  2. DEFERASIROX [Suspect]
     Active Substance: DEFERASIROX
     Indication: Sickle cell disease
     Dosage: FREQUENCY : DAILY;?
     Route: 048
  3. DEFERASIROX [Concomitant]
     Active Substance: DEFERASIROX
  4. ASPIRIN [Concomitant]
     Active Substance: ASPIRIN
  5. ATORVASTATIN [Concomitant]
     Active Substance: ATORVASTATIN
  6. COREG [Concomitant]
     Active Substance: CARVEDILOL
  7. DOCUSATE SODIUM [Concomitant]
     Active Substance: DOCUSATE SODIUM
  8. FOLIC ACID [Concomitant]
     Active Substance: FOLIC ACID
  9. HYDRLAZINE [Concomitant]
  10. HYDROXYUREA [Concomitant]
     Active Substance: HYDROXYUREA
  11. LASIX [Concomitant]
     Active Substance: FUROSEMIDE
  12. LOKELMA [Concomitant]
     Active Substance: SODIUM ZIRCONIUM CYCLOSILICATE
  13. LOVASTATIN [Concomitant]
     Active Substance: LOVASTATIN
  14. NORVASC [Concomitant]
     Active Substance: AMLODIPINE BESYLATE
  15. OXBRYTA [Concomitant]
     Active Substance: VOXELOTOR
  16. PENVILLIN V POTASSIUM [Concomitant]
  17. PERCOCET [Concomitant]
     Active Substance: ACETAMINOPHEN\OXYCODONE HYDROCHLORIDE
  18. PROMETHAZINE [Concomitant]
     Active Substance: PROMETHAZINE HYDROCHLORIDE

REACTIONS (2)
  - Illness [None]
  - Therapy interrupted [None]
